FAERS Safety Report 7550234-2 (Version None)
Quarter: 2011Q2

REPORT INFORMATION
  Report Type: 
  Country: None (occurrence: None)
  Receive Date: 20110615
  Receipt Date: 20110613
  Transmission Date: 20111010
  Serious: Yes (Hospitalization)
  Sender: FDA-Public Use
  Company Number: JP-ABBOTT-10P-087-0684103-00

PATIENT
  Sex: Female
  Weight: 41 kg

DRUGS (19)
  1. PREDNISOLONE [Suspect]
     Indication: SCLERODERMA
     Dosage: 12.5 MG DAILY
     Dates: start: 20100706, end: 20100719
  2. PREDNISOLONE [Suspect]
     Dosage: 40MG DAILY
     Dates: start: 20100731, end: 20100827
  3. PREDNISOLONE [Suspect]
     Dosage: 35MG DAILY
     Dates: start: 20100828, end: 20100910
  4. LOXOPROFEN SODIUM HYDRATE [Concomitant]
     Route: 048
     Dates: end: 20100723
  5. FOLIC ACID [Concomitant]
     Indication: ADVERSE DRUG REACTION
  6. LOXOPROFEN SODIUM HYDRATE [Suspect]
     Indication: RHEUMATOID ARTHRITIS
     Route: 048
     Dates: end: 20100705
  7. METHOTREXATE [Concomitant]
     Indication: RHEUMATOID ARTHRITIS
     Route: 048
     Dates: end: 20100723
  8. LANSOPRAZOLE [Concomitant]
     Indication: REFLUX OESOPHAGITIS
     Route: 048
     Dates: end: 20100723
  9. LIMAPROST ALFADEX [Concomitant]
     Indication: SCLERODERMA
     Route: 048
     Dates: end: 20100723
  10. TOCOPHEROL CONCENTRATE CAP [Concomitant]
     Indication: SCLERODERMA
     Route: 048
     Dates: end: 20100723
  11. PREDNISOLONE [Suspect]
     Dosage: 30MG DAILY
     Dates: start: 20100911, end: 20100924
  12. FOLIC ACID [Concomitant]
     Indication: PROPHYLAXIS
     Route: 048
     Dates: end: 20100723
  13. PREDNISOLONE [Suspect]
     Dosage: 20MG DAILY
     Dates: start: 20100720, end: 20100730
  14. PREDNISOLONE [Suspect]
     Dosage: 25MG DAILY
     Dates: start: 20100925
  15. LOXOPROFEN SODIUM HYDRATE [Suspect]
     Dosage: 120 MG DAILY
     Dates: start: 20100706, end: 20100719
  16. PREDNISOLONE [Suspect]
     Indication: RHEUMATOID ARTHRITIS
     Dosage: 10 MG DAILY
     Route: 048
     Dates: start: 20100507, end: 20100705
  17. MOSAPRIDE CITRATE HYDRATE [Concomitant]
     Indication: REFLUX OESOPHAGITIS
     Route: 048
     Dates: end: 20100723
  18. HUMIRA [Suspect]
     Indication: RHEUMATOID ARTHRITIS
     Route: 058
     Dates: start: 20100511, end: 20100719
  19. REBAMIPIDE [Concomitant]
     Indication: GASTRITIS PROPHYLAXIS
     Route: 048
     Dates: end: 20100723

REACTIONS (3)
  - BLOOD CREATININE INCREASED [None]
  - SCLERODERMA [None]
  - MYOSITIS [None]
